FAERS Safety Report 15825671 (Version 2)
Quarter: 2019Q1

REPORT INFORMATION
  Report Type: Report from Study
  Country: GT (occurrence: GT)
  Receive Date: 20190115
  Receipt Date: 20190206
  Transmission Date: 20190417
  Serious: Yes (Other)
  Sender: FDA-Public Use
  Company Number: GT-SA-2019SA003766

PATIENT
  Age: 69 Year
  Sex: Female

DRUGS (1)
  1. IRBESARTAN. [Suspect]
     Active Substance: IRBESARTAN
     Indication: HYPERTENSION
     Dosage: 1 DF, QD (1 ORAL TABLET OF 300 MG OF IRBESARTAN)
     Route: 048
     Dates: start: 2010

REACTIONS (3)
  - Breast cancer [Recovered/Resolved with Sequelae]
  - Foot fracture [Recovered/Resolved with Sequelae]
  - Blood pressure inadequately controlled [Unknown]

NARRATIVE: CASE EVENT DATE: 2013
